FAERS Safety Report 5762856-X (Version None)
Quarter: 2008Q2

REPORT INFORMATION
  Report Type: 
  Country: None (occurrence: None)
  Receive Date: 20080609
  Receipt Date: 20080527
  Transmission Date: 20081010
  Serious: No
  Sender: FDA-Public Use
  Company Number: US-BAYER-200812002BCC

PATIENT
  Age: 14 Year
  Sex: Male

DRUGS (1)
  1. ALEVE [Suspect]
     Indication: SUICIDE ATTEMPT
     Route: 048
     Dates: start: 20080526

REACTIONS (1)
  - NO ADVERSE EVENT [None]
